FAERS Safety Report 22257385 (Version 3)
Quarter: 2023Q2

REPORT INFORMATION
  Report Type: Spontaneous
  Country: CZ (occurrence: CZ)
  Receive Date: 20230427
  Receipt Date: 20230529
  Transmission Date: 20230722
  Serious: Yes (Other)
  Sender: FDA-Public Use
  Company Number: CZ-AUROBINDO-AUR-APL-2023-031727

PATIENT
  Age: 48 Year
  Sex: Female

DRUGS (8)
  1. LEFLUNOMIDE [Suspect]
     Active Substance: LEFLUNOMIDE
     Indication: Rheumatoid arthritis
     Dosage: UNK
     Route: 065
     Dates: start: 2015, end: 2016
  2. LEFLUNOMIDE [Suspect]
     Active Substance: LEFLUNOMIDE
     Indication: Product used for unknown indication
     Dosage: UNK
     Route: 065
     Dates: start: 2015
  3. ADALIMUMAB [Concomitant]
     Active Substance: ADALIMUMAB
     Indication: Product used for unknown indication
     Dosage: UNK
     Route: 065
     Dates: start: 201605
  4. TOFACITINIB [Concomitant]
     Active Substance: TOFACITINIB
     Indication: Product used for unknown indication
     Dosage: UNK
     Route: 065
     Dates: start: 201610
  5. ETANERCEPT [Concomitant]
     Active Substance: ETANERCEPT
     Indication: Product used for unknown indication
     Dosage: UNK
     Route: 065
     Dates: start: 2017
  6. ABATACEPT [Concomitant]
     Active Substance: ABATACEPT
     Indication: Product used for unknown indication
     Dosage: UNK
     Route: 065
     Dates: start: 2018
  7. ABATACEPT [Concomitant]
     Active Substance: ABATACEPT
     Dosage: UNK
     Route: 065
     Dates: start: 2019
  8. SARILUMAB [Concomitant]
     Active Substance: SARILUMAB
     Indication: Product used for unknown indication
     Dosage: UNK
     Route: 065
     Dates: start: 201903

REACTIONS (2)
  - Liver disorder [Recovered/Resolved]
  - Drug ineffective [Unknown]
